FAERS Safety Report 6901501-4 (Version None)
Quarter: 2010Q3

REPORT INFORMATION
  Report Type: 
  Country: None (occurrence: None)
  Receive Date: 20100803
  Receipt Date: 20080325
  Transmission Date: 20110219
  Serious: No
  Sender: FDA-Public Use
  Company Number: US-PFIZER INC-2008007083

PATIENT
  Sex: Female

DRUGS (3)
  1. LYRICA [Suspect]
     Indication: PAIN
     Route: 048
     Dates: start: 20070822
  2. CELEBREX [Concomitant]
  3. LEXAPRO [Concomitant]

REACTIONS (2)
  - VISION BLURRED [None]
  - VISUAL BRIGHTNESS [None]
